FAERS Safety Report 7223033-9 (Version None)
Quarter: 2011Q1

REPORT INFORMATION
  Report Type: 
  Country: None (occurrence: None)
  Receive Date: 20110112
  Receipt Date: 20110106
  Transmission Date: 20110831
  Serious: Yes (Other)
  Sender: FDA-Public Use
  Company Number: US-RB-017031-10

PATIENT
  Age: 54 Year
  Sex: Female

DRUGS (1)
  1. SUBOXONE [Suspect]
     Indication: PRODUCT USED FOR UNKNOWN INDICATION
     Dosage: DOSING INFORMATION UNKNOWN
     Route: 065

REACTIONS (4)
  - VISION BLURRED [None]
  - NASOPHARYNGITIS [None]
  - HALLUCINATION, AUDITORY [None]
  - MEMORY IMPAIRMENT [None]
